FAERS Safety Report 7078171-0 (Version None)
Quarter: 2010Q4

REPORT INFORMATION
  Report Type: 
  Country: None (occurrence: None)
  Receive Date: 20101102
  Receipt Date: 20101022
  Transmission Date: 20110411
  Serious: Yes (Other)
  Sender: FDA-Public Use
  Company Number: FI-JNJFOC-20101006389

PATIENT
  Sex: Female

DRUGS (3)
  1. REMICADE [Suspect]
     Indication: CROHN'S DISEASE
     Dosage: 3RD INFUSION WITHIN 6 WEEKS
     Route: 042
  2. REMICADE [Suspect]
     Route: 042
  3. REMICADE [Suspect]
     Dosage: 3 TOTAL INFUSIONS WITHIN 6 WEEKS
     Route: 042

REACTIONS (4)
  - ARTHRALGIA [None]
  - DERMATITIS PSORIASIFORM [None]
  - GAIT DISTURBANCE [None]
  - OEDEMA PERIPHERAL [None]
